FAERS Safety Report 10866527 (Version 1)
Quarter: 2015Q1

REPORT INFORMATION
  Report Type: Spontaneous
  Country: US (occurrence: None)
  Receive Date: 20150220
  Receipt Date: 20150220
  Transmission Date: 20150721
  Serious: Yes (Death)
  Sender: FDA-Public Use
  Company Number: None

PATIENT
  Age: 65 Year
  Sex: Male
  Weight: 89.4 kg

DRUGS (3)
  1. PROTHROMBIN COMPLEX CONCENTRATE (KCENTRA) [Concomitant]
  2. RIVAROXABAN 20MG [Suspect]
     Active Substance: RIVAROXABAN
     Indication: THROMBOSIS PROPHYLAXIS
     Dosage: 1 PILL
     Route: 048
     Dates: start: 20140829, end: 20150112
  3. RIVAROXABAN [Concomitant]
     Active Substance: RIVAROXABAN

REACTIONS (5)
  - Fall [None]
  - Subdural haematoma [None]
  - Subarachnoid haemorrhage [None]
  - Unresponsive to stimuli [None]
  - Skull fractured base [None]

NARRATIVE: CASE EVENT DATE: 20150110
